FAERS Safety Report 5839195-1 (Version None)
Quarter: 2008Q3

REPORT INFORMATION
  Report Type: 
  Country: None (occurrence: None)
  Receive Date: 20080808
  Receipt Date: 20080804
  Transmission Date: 20090109
  Serious: Yes (Disabling)
  Sender: FDA-Public Use
  Company Number: US-MERCK-0807USA00617

PATIENT
  Age: 63 Year
  Sex: Female
  Weight: 117 kg

DRUGS (1)
  1. JANUVIA [Suspect]
     Indication: DIABETES MELLITUS
     Route: 048
     Dates: start: 20070307, end: 20080623

REACTIONS (3)
  - EYE SWELLING [None]
  - PERIORBITAL OEDEMA [None]
  - PRURITUS [None]
